FAERS Safety Report 11813348 (Version 1)
Quarter: 2015Q4

REPORT INFORMATION
  Report Type: Spontaneous
  Country: US (occurrence: None)
  Receive Date: 20151208
  Receipt Date: 20151208
  Transmission Date: 20160305
  Serious: Yes (Hospitalization)
  Sender: FDA-Public Use
  Company Number: None

PATIENT
  Age: 79 Year
  Sex: Female
  Weight: 50.8 kg

DRUGS (7)
  1. VIT. B12 [Concomitant]
  2. MAG OX [Concomitant]
     Active Substance: MAGNESIUM OXIDE
  3. ASA [Suspect]
     Active Substance: ASPIRIN
     Indication: CORONARY ARTERY DISEASE
     Dosage: CHRONIC
     Route: 048
  4. LASIX [Concomitant]
     Active Substance: FUROSEMIDE
  5. COREG [Concomitant]
     Active Substance: CARVEDILOL
  6. LIPITOR [Concomitant]
     Active Substance: ATORVASTATIN CALCIUM
  7. LISINOPRIL. [Concomitant]
     Active Substance: LISINOPRIL

REACTIONS (3)
  - Gastric ulcer haemorrhage [None]
  - Haemorrhagic anaemia [None]
  - Diverticulum intestinal [None]

NARRATIVE: CASE EVENT DATE: 20150301
